FAERS Safety Report 6353390-7 (Version None)
Quarter: 2009Q3

REPORT INFORMATION
  Report Type: 
  Country: None (occurrence: None)
  Receive Date: 20090912
  Receipt Date: 20090622
  Transmission Date: 20100115
  Serious: No
  Sender: FDA-Public Use
  Company Number: US-ABBOTT-08P-163-0474581-00

PATIENT
  Sex: Female
  Weight: 68.1 kg

DRUGS (9)
  1. HUMIRA [Suspect]
     Indication: RHEUMATOID ARTHRITIS
     Route: 058
  2. METFORMIN HCL [Concomitant]
     Indication: DIABETES MELLITUS
  3. COLESEVELAM HYDROCHLORIDE [Concomitant]
     Indication: BLOOD CHOLESTEROL INCREASED
  4. HYDROCHLOROTHIAZIDE [Concomitant]
     Indication: HYPERTENSION
  5. RAMIPRIL [Concomitant]
     Indication: HYPERTENSION
  6. IRBESARTAN [Concomitant]
     Indication: HYPERTENSION
  7. HYDROXYCHLOROQUINE [Concomitant]
     Indication: RHEUMATOID ARTHRITIS
  8. METHOTREXATE [Concomitant]
     Indication: DRUG USE FOR UNKNOWN INDICATION
  9. FOLIC ACID [Concomitant]
     Indication: DRUG USE FOR UNKNOWN INDICATION

REACTIONS (2)
  - DRUG DELIVERY SYSTEM MALFUNCTION [None]
  - INJECTION SITE PAIN [None]
